FAERS Safety Report 5975989-X (Version None)
Quarter: 2008Q4

REPORT INFORMATION
  Report Type: 
  Country: None (occurrence: None)
  Receive Date: 20081202
  Receipt Date: 20081124
  Transmission Date: 20090506
  Serious: Yes (Hospitalization)
  Sender: FDA-Public Use
  Company Number: BE-JNJFOC-20081105882

PATIENT
  Age: 73 Year
  Sex: Female

DRUGS (2)
  1. INFLIXIMAB [Suspect]
     Route: 042
  2. INFLIXIMAB [Suspect]
     Indication: RHEUMATOID ARTHRITIS
     Dosage: 5 YEARS AND 3 MONTHS
     Route: 042

REACTIONS (2)
  - JOINT DISLOCATION [None]
  - OSTEOLYSIS [None]
